FAERS Safety Report 11815898 (Version 7)
Quarter: 2016Q1

REPORT INFORMATION
  Report Type: Spontaneous
  Country: CN (occurrence: CN)
  Receive Date: 20151209
  Receipt Date: 20160321
  Transmission Date: 20160525
  Serious: Yes (Hospitalization)
  Sender: FDA-Public Use
  Company Number: PHHY2015CN160181

PATIENT
  Age: 81 Year
  Sex: Female

DRUGS (2)
  1. ACLASTA [Suspect]
     Active Substance: ZOLEDRONIC ACID
     Indication: OSTEOPOROSIS POSTMENOPAUSAL
     Dosage: 5 MG, YEARLY
     Route: 041
     Dates: start: 20140813
  2. ACLASTA [Suspect]
     Active Substance: ZOLEDRONIC ACID
     Dosage: 5 MG, YEARLY
     Route: 041
     Dates: start: 20150831

REACTIONS (18)
  - Haematocrit decreased [Unknown]
  - Haemoglobin decreased [Unknown]
  - Dyskinesia [Not Recovered/Not Resolved]
  - Lymphadenopathy [Unknown]
  - Feeding disorder [Unknown]
  - Pain [Not Recovered/Not Resolved]
  - Dental fistula [Unknown]
  - Oral dysaesthesia [Unknown]
  - Osteomyelitis [Recovering/Resolving]
  - Osteonecrosis of jaw [Not Recovered/Not Resolved]
  - Toothache [Unknown]
  - Tooth loss [Unknown]
  - Swelling [Not Recovered/Not Resolved]
  - Hypoaesthesia oral [Not Recovered/Not Resolved]
  - Pain in jaw [Unknown]
  - Loose tooth [Unknown]
  - Purulent discharge [Not Recovered/Not Resolved]
  - Oral mucosal erythema [Unknown]

NARRATIVE: CASE EVENT DATE: 201509
